FAERS Safety Report 9263913 (Version 1)
Quarter: 2013Q2

REPORT INFORMATION
  Report Type: Spontaneous
  Country: CA (occurrence: CA)
  Receive Date: 20130430
  Receipt Date: 20130430
  Transmission Date: 20140414
  Serious: Yes (Hospitalization)
  Sender: FDA-Public Use
  Company Number: CA-GLAXOSMITHKLINE-A1020271A

PATIENT
  Sex: Female

DRUGS (2)
  1. VENTOLIN [Suspect]
     Indication: ANXIETY
     Route: 065
     Dates: start: 2005
  2. ATROVENT [Concomitant]

REACTIONS (2)
  - Influenza [Unknown]
  - Drug ineffective [Unknown]
